FAERS Safety Report 22922579 (Version 13)
Quarter: 2025Q4

REPORT INFORMATION
  Report Type: Report from Study
  Country: CA (occurrence: CA)
  Receive Date: 20230908
  Receipt Date: 20251014
  Transmission Date: 20260118
  Serious: Yes (Hospitalization, Other)
  Sender: TAKEDA
  Company Number: CA-TAKEDA-2022TUS033595

PATIENT
  Age: 34 Year
  Sex: Female

DRUGS (9)
  1. VEDOLIZUMAB [Suspect]
     Active Substance: VEDOLIZUMAB
     Indication: Colitis ulcerative
     Dosage: 300 MILLIGRAM
  2. VEDOLIZUMAB [Suspect]
     Active Substance: VEDOLIZUMAB
     Dosage: 300 MILLIGRAM
  3. VEDOLIZUMAB [Suspect]
     Active Substance: VEDOLIZUMAB
     Dosage: 300 MILLIGRAM
  4. VEDOLIZUMAB [Suspect]
     Active Substance: VEDOLIZUMAB
     Dosage: 300 MILLIGRAM
  5. VEDOLIZUMAB [Suspect]
     Active Substance: VEDOLIZUMAB
     Dosage: 300 MILLIGRAM
  6. VEDOLIZUMAB [Suspect]
     Active Substance: VEDOLIZUMAB
     Dosage: 300 MILLIGRAM
  7. VEDOLIZUMAB [Suspect]
     Active Substance: VEDOLIZUMAB
     Dosage: 300 MILLIGRAM
  8. VEDOLIZUMAB [Suspect]
     Active Substance: VEDOLIZUMAB
     Indication: Colitis ulcerative
     Dosage: 108 MILLIGRAM, Q2WEEKS
     Dates: start: 20241206
  9. ETHINYL ESTRADIOL\LEVONORGESTREL [Suspect]
     Active Substance: ETHINYL ESTRADIOL\LEVONORGESTREL
     Indication: Product used for unknown indication
     Dosage: UNK

REACTIONS (33)
  - Haematochezia [Recovering/Resolving]
  - Frequent bowel movements [Unknown]
  - Placental disorder [Recovered/Resolved]
  - Face injury [Unknown]
  - Animal bite [Unknown]
  - Colitis ulcerative [Not Recovered/Not Resolved]
  - Anaphylactic shock [Unknown]
  - Peripheral swelling [Unknown]
  - Injection site pain [Unknown]
  - Mouth ulceration [Not Recovered/Not Resolved]
  - Gastroenteritis viral [Unknown]
  - Illness [Recovered/Resolved]
  - Diarrhoea [Unknown]
  - Myalgia [Recovered/Resolved]
  - Product dose omission issue [Unknown]
  - Maternal exposure during breast feeding [Unknown]
  - Mucous stools [Unknown]
  - Drug hypersensitivity [Unknown]
  - Irritable bowel syndrome [Unknown]
  - Injection site bruising [Unknown]
  - Weight decreased [Unknown]
  - Alopecia [Unknown]
  - Nail growth abnormal [Unknown]
  - Fall [Unknown]
  - Gait inability [Unknown]
  - Visual impairment [Unknown]
  - Malaise [Unknown]
  - Headache [Unknown]
  - Fatigue [Recovered/Resolved]
  - Influenza [Unknown]
  - Pyrexia [Recovered/Resolved]
  - COVID-19 [Recovered/Resolved]
  - Pregnancy [Recovered/Resolved]

NARRATIVE: CASE EVENT DATE: 20220515
